FAERS Safety Report 7177853-X (Version None)
Quarter: 2010Q4

REPORT INFORMATION
  Report Type: 
  Country: None (occurrence: None)
  Receive Date: 20101220
  Receipt Date: 20101214
  Transmission Date: 20110411
  Serious: Yes (Other)
  Sender: FDA-Public Use
  Company Number: US-AMGEN-USASP2010009530

PATIENT

DRUGS (9)
  1. PROCRIT [Suspect]
     Indication: RENAL FAILURE CHRONIC
     Dosage: 10000 IU, 2 TIMES/WK
     Route: 058
     Dates: start: 20090101
  2. PROCRIT [Suspect]
     Dosage: 10000 IU, 3 TIMES/WK
  3. IRON [Concomitant]
  4. VITAMIN A [Concomitant]
     Dosage: UNK
  5. LISINOPRIL [Concomitant]
     Dosage: UNK
  6. GLIPIZIDE [Concomitant]
     Dosage: UNK
  7. OMEPRAZOLE [Concomitant]
     Dosage: UNK
  8. METOPROLOL TARTRATE [Concomitant]
     Dosage: UNK
  9. HYDRALAZINE [Concomitant]
     Dosage: UNK

REACTIONS (1)
  - APLASIA PURE RED CELL [None]
